FAERS Safety Report 9033577 (Version 1)
Quarter: 2013Q1

REPORT INFORMATION
  Report Type: Spontaneous
  Country: US (occurrence: US)
  Receive Date: 20130128
  Receipt Date: 20130128
  Transmission Date: 20140127
  Serious: Yes (Hospitalization, Disabling, Other)
  Sender: FDA-Public Use
  Company Number: US-009507513-1012USA02371

PATIENT
  Sex: Female
  Weight: 74.84 kg

DRUGS (4)
  1. FOSAMAX [Suspect]
     Indication: OSTEOPOROSIS PROPHYLAXIS
     Dosage: 10 MG, QD
     Route: 048
     Dates: start: 19990101, end: 20030301
  2. FOSAMAX [Suspect]
     Route: 048
     Dates: start: 199905
  3. FOSAMAX [Suspect]
     Dosage: 70 MG, QW
     Route: 048
     Dates: start: 20030331, end: 20080129
  4. FOSAMAX PLUS D [Suspect]
     Indication: OSTEOPOROSIS PROPHYLAXIS
     Dosage: 70 MG, QW
     Route: 048
     Dates: start: 20080130, end: 20090220

REACTIONS (68)
  - Gastroenteritis viral [Recovering/Resolving]
  - Back disorder [Unknown]
  - Dementia [Unknown]
  - Dehydration [Recovering/Resolving]
  - Enteritis [Recovering/Resolving]
  - Basal cell carcinoma [Unknown]
  - Meniscus injury [Recovering/Resolving]
  - Deafness [Unknown]
  - Osteomyelitis [Unknown]
  - Osteonecrosis of jaw [Unknown]
  - Chest pain [Unknown]
  - Exostosis of jaw [Unknown]
  - Exostosis [Unknown]
  - Impaired healing [Unknown]
  - Abscess [Unknown]
  - Fall [Unknown]
  - Facial bones fracture [Unknown]
  - Tooth fracture [Unknown]
  - Muscle injury [Unknown]
  - Hypertension [Unknown]
  - Hypercholesterolaemia [Unknown]
  - Muscle strain [Unknown]
  - Dysaesthesia [Unknown]
  - Trigeminal neuralgia [Unknown]
  - Ligament sprain [Unknown]
  - Spinal column stenosis [Unknown]
  - Dermatitis contact [Recovering/Resolving]
  - Lower gastrointestinal haemorrhage [Unknown]
  - Fall [Unknown]
  - Fall [Recovered/Resolved]
  - Bursitis [Unknown]
  - Costochondritis [Unknown]
  - Abnormal loss of weight [Unknown]
  - Spondylolisthesis [Unknown]
  - Large intestine polyp [Unknown]
  - Weight decreased [Unknown]
  - Haematochezia [Unknown]
  - Intervertebral disc degeneration [Unknown]
  - Diverticulum [Unknown]
  - Hyperglycaemia [Unknown]
  - Haemorrhoids [Unknown]
  - Breast disorder [Unknown]
  - Chest pain [Recovered/Resolved]
  - Palpitations [Not Recovered/Not Resolved]
  - Fall [Unknown]
  - Herpes virus infection [Unknown]
  - Exostosis of jaw [Unknown]
  - Device related infection [Unknown]
  - Oral infection [Unknown]
  - Trigeminal neuralgia [Unknown]
  - Ear pain [Unknown]
  - Oropharyngeal pain [Recovered/Resolved]
  - Bruxism [Unknown]
  - Tooth disorder [Unknown]
  - Anxiety disorder [Unknown]
  - Road traffic accident [Unknown]
  - Allergic sinusitis [Unknown]
  - Oral pain [Unknown]
  - Osteopenia [Unknown]
  - Osteoporosis [Unknown]
  - Musculoskeletal discomfort [Unknown]
  - Musculoskeletal discomfort [Unknown]
  - Musculoskeletal discomfort [Unknown]
  - Oedema peripheral [Unknown]
  - Constipation [Unknown]
  - Vertigo [Unknown]
  - Gastrooesophageal reflux disease [Unknown]
  - Neck pain [Recovered/Resolved]
